FAERS Safety Report 9273371 (Version 5)
Quarter: 2015Q1

REPORT INFORMATION
  Report Type: Spontaneous
  Country: US (occurrence: US)
  Receive Date: 20130506
  Receipt Date: 20150306
  Transmission Date: 20150721
  Serious: Yes (Hospitalization)
  Sender: FDA-Public Use
  Company Number: US-009507513-1305USA001658

PATIENT
  Sex: Male
  Weight: 68.93 kg

DRUGS (2)
  1. PROPECIA [Suspect]
     Active Substance: FINASTERIDE
     Indication: ANDROGENETIC ALOPECIA
     Dosage: 1 MG, QD
     Route: 048
     Dates: start: 2000, end: 20141029
  2. FINASTERIDE. [Suspect]
     Active Substance: FINASTERIDE
     Dosage: 1 MG, UNK
     Dates: start: 20140513, end: 20150105

REACTIONS (15)
  - Depression [Not Recovered/Not Resolved]
  - Cognitive disorder [Not Recovered/Not Resolved]
  - Psoriasis [Unknown]
  - Drug hypersensitivity [Unknown]
  - Eczema [Unknown]
  - Hair transplant [Unknown]
  - Erectile dysfunction [Not Recovered/Not Resolved]
  - Hyperlipidaemia [Unknown]
  - Lymphadenopathy [Unknown]
  - Rash [Unknown]
  - Anxiety [Not Recovered/Not Resolved]
  - Loss of libido [Unknown]
  - Drug effect incomplete [Unknown]
  - Sexual dysfunction [Not Recovered/Not Resolved]
  - Visual impairment [Unknown]

NARRATIVE: CASE EVENT DATE: 2003
